FAERS Safety Report 5669390-6 (Version None)
Quarter: 2008Q1

REPORT INFORMATION
  Report Type: 
  Country: None (occurrence: None)
  Receive Date: 20080317
  Receipt Date: 20080304
  Transmission Date: 20080703
  Serious: Yes (Hospitalization, Disabling, Other)
  Sender: FDA-Public Use
  Company Number: FR-JNJFOC-20071005449

PATIENT
  Age: 24 Year
  Sex: Female
  Weight: 49 kg

DRUGS (4)
  1. REMICADE [Suspect]
     Dosage: INFUSIONS 2 - 3 ON UNKNOWN DATES
     Route: 042
  2. REMICADE [Suspect]
     Route: 042
  3. REMICADE [Suspect]
     Route: 042
  4. REMICADE [Suspect]
     Indication: DRUG USE FOR UNKNOWN INDICATION
     Route: 042

REACTIONS (1)
  - MULTIPLE SCLEROSIS [None]
